FAERS Safety Report 7311882-8 (Version None)
Quarter: 2011Q1

REPORT INFORMATION
  Report Type: 
  Country: None (occurrence: None)
  Receive Date: 20110215
  Receipt Date: 20110215
  Transmission Date: 20110831
  Serious: Yes (Hospitalization)
  Sender: FDA-Public Use
  Company Number: None

PATIENT
  Age: 79 Year
  Sex: Male
  Weight: 94.8018 kg

DRUGS (16)
  1. ALBUTEROL SULFATE [Concomitant]
  2. FLOVENT HFA [Concomitant]
  3. VITAMIN D [Concomitant]
  4. LEVEMIR [Concomitant]
  5. PATANASE [Concomitant]
  6. LASIX [Concomitant]
  7. LIPITOR [Concomitant]
  8. TERAZOSIN [Concomitant]
  9. VICTOZA [Suspect]
     Dosage: 1.2 MG DAILY SUBCUTANEOUSLY
     Route: 058
  10. COZAAR [Concomitant]
  11. HUMALOG [Concomitant]
  12. IPATROPIUM BROMIDE [Concomitant]
  13. ANDROGEL [Concomitant]
  14. ASPIRIN [Concomitant]
  15. NASACORT [Concomitant]
  16. NIASPAN [Concomitant]

REACTIONS (1)
  - ATRIAL FIBRILLATION [None]
